FAERS Safety Report 10511701 (Version 3)
Quarter: 2014Q4

REPORT INFORMATION
  Report Type: Report from Study
  Country: US (occurrence: US)
  Receive Date: 20141010
  Receipt Date: 20141103
  Transmission Date: 20150528
  Serious: Yes (Hospitalization, Other)
  Sender: FDA-Public Use
  Company Number: US-BAYER-2014-140147

PATIENT
  Age: 56 Year
  Sex: Male

DRUGS (2)
  1. NEXAVAR [Suspect]
     Active Substance: SORAFENIB
     Indication: LUNG NEOPLASM MALIGNANT
  2. NEXAVAR [Suspect]
     Active Substance: SORAFENIB
     Indication: HEPATIC CANCER
     Dosage: 400 MG, BID
     Route: 048
     Dates: start: 20140909, end: 20141013

REACTIONS (7)
  - Abdominal pain [None]
  - Dry skin [Not Recovered/Not Resolved]
  - Pain [None]
  - Abdominal pain [Not Recovered/Not Resolved]
  - Vomiting [None]
  - Choking [None]
  - Drug dose omission [None]

NARRATIVE: CASE EVENT DATE: 20140915
